FAERS Safety Report 6015852-1 (Version None)
Quarter: 2008Q4

REPORT INFORMATION
  Report Type: 
  Country: None (occurrence: None)
  Receive Date: 20081222
  Receipt Date: 20081219
  Transmission Date: 20090506
  Serious: Yes (Death)
  Sender: FDA-Public Use
  Company Number: A0761163A

PATIENT
  Age: 82 Year
  Sex: Male
  Weight: 90 kg

DRUGS (5)
  1. SERETIDE [Suspect]
     Indication: RALES
     Dosage: 2PUFF TWICE PER DAY
     Route: 055
     Dates: start: 20070701, end: 20080115
  2. COMBIVENT [Concomitant]
     Dosage: 2PUFF FOUR TIMES PER DAY
     Dates: start: 20070101, end: 20080115
  3. GLYBURIDE [Concomitant]
     Dates: start: 20050101, end: 20080115
  4. LASIX [Concomitant]
     Dates: start: 20050101, end: 20080115
  5. ASPIRIN [Concomitant]
     Dates: start: 20071001, end: 20080115

REACTIONS (1)
  - CARDIAC FAILURE [None]
